FAERS Safety Report 19138237 (Version 3)
Quarter: 2021Q2

REPORT INFORMATION
  Report Type: Spontaneous
  Country: JP (occurrence: JP)
  Receive Date: 20210414
  Receipt Date: 20210604
  Transmission Date: 20210717
  Serious: Yes (Hospitalization)
  Sender: FDA-Public Use
  Company Number: JP-ROCHE-2810889

PATIENT
  Age: 83 Year
  Sex: Male
  Weight: 46.4 kg

DRUGS (3)
  1. TECENTRIQ [Suspect]
     Active Substance: ATEZOLIZUMAB
     Indication: HEPATOCELLULAR CARCINOMA
     Dosage: DATE OF MOST RECENT DOSE: 23/MAR/2021
     Route: 041
     Dates: start: 20210209
  2. AVASTIN [Suspect]
     Active Substance: BEVACIZUMAB
     Indication: HEPATOCELLULAR CARCINOMA
     Dosage: 600 MILLIGRAM, ONCE/3WEEKS
     Route: 041
     Dates: start: 20210209, end: 20210323
  3. CRAVIT [Concomitant]
     Active Substance: LEVOFLOXACIN
     Route: 065

REACTIONS (5)
  - Hypophagia [Recovered/Resolved]
  - Decreased activity [Recovered/Resolved]
  - Hyponatraemia [Recovered/Resolved]
  - Hypothyroidism [Recovered/Resolved]
  - Cholangitis [Recovered/Resolved]

NARRATIVE: CASE EVENT DATE: 20210330
